FAERS Safety Report 14248544 (Version 1)
Quarter: 2017Q4

REPORT INFORMATION
  Report Type: Spontaneous
  Country: US (occurrence: US)
  Receive Date: 20171202
  Receipt Date: 20171202
  Transmission Date: 20180321
  Serious: Yes (Disabling)
  Sender: FDA-Public Use
  Company Number: None

PATIENT
  Sex: Female
  Weight: 41.4 kg

DRUGS (1)
  1. TRIAMCINOLONE ACETONIDE OINTMENT USP, 0.1% [Suspect]
     Active Substance: TRIAMCINOLONE ACETONIDE
     Indication: ECZEMA
     Route: 061

REACTIONS (5)
  - Dry skin [None]
  - Eczema [None]
  - Drug ineffective [None]
  - Pruritus [None]
  - Asthma [None]

NARRATIVE: CASE EVENT DATE: 20160801
